FAERS Safety Report 6423911-4 (Version None)
Quarter: 2009Q4

REPORT INFORMATION
  Report Type: 
  Country: None (occurrence: None)
  Receive Date: 20091030
  Receipt Date: 20091030
  Transmission Date: 20100525
  Serious: Yes (Hospitalization)
  Sender: FDA-Public Use
  Company Number: None

PATIENT
  Age: 47 Year
  Sex: Female
  Weight: 82.1 kg

DRUGS (1)
  1. LAMOTRIGINE [Suspect]
     Indication: AFFECTIVE DISORDER
     Dosage: 25 MG EVERY DAY PO
     Route: 048
     Dates: start: 20090416, end: 20090422

REACTIONS (1)
  - RASH [None]
